FAERS Safety Report 6400086-9 (Version None)
Quarter: 2009Q4

REPORT INFORMATION
  Report Type: 
  Country: None (occurrence: None)
  Receive Date: 20091014
  Receipt Date: 20091005
  Transmission Date: 20100525
  Serious: Yes (Hospitalization)
  Sender: FDA-Public Use
  Company Number: B0592849A

PATIENT
  Sex: Female

DRUGS (15)
  1. ARIXTRA [Suspect]
     Indication: DRUG USE FOR UNKNOWN INDICATION
     Dosage: 5MG PER DAY
     Route: 058
     Dates: start: 20090710, end: 20090719
  2. PLAVIX [Suspect]
     Indication: DRUG USE FOR UNKNOWN INDICATION
     Dosage: 75MG PER DAY
     Route: 048
     Dates: end: 20090722
  3. ASPEGIC 325 [Suspect]
     Indication: DRUG USE FOR UNKNOWN INDICATION
     Dosage: 100MG PER DAY
     Route: 048
     Dates: start: 20090710, end: 20090722
  4. KENZEN [Concomitant]
     Dosage: 8MG UNKNOWN
     Route: 065
  5. TAREG [Concomitant]
     Dosage: 80MG UNKNOWN
     Route: 048
     Dates: start: 20090710, end: 20090722
  6. LASILIX [Concomitant]
     Dosage: 80MG UNKNOWN
     Route: 042
     Dates: start: 20090710, end: 20090713
  7. LASILIX [Concomitant]
     Dosage: 40MG UNKNOWN
     Route: 048
     Dates: start: 20090714, end: 20090722
  8. GLUCOPHAGE [Concomitant]
     Dosage: 850MG UNKNOWN
     Route: 048
  9. GLUCOR [Concomitant]
     Dosage: 150MG PER DAY
     Route: 065
  10. DIAMICRON [Concomitant]
     Dosage: 30MG UNKNOWN
     Route: 048
     Dates: end: 20090722
  11. SIMVASTATIN [Concomitant]
     Route: 048
  12. EXELON [Concomitant]
     Indication: DRUG USE FOR UNKNOWN INDICATION
     Route: 048
  13. PACKED BLOOD CELLS [Concomitant]
     Dosage: 2%DS PER DAY
     Route: 065
     Dates: start: 20090721
  14. ISOPTIN [Concomitant]
     Route: 065
  15. LOVENOX [Concomitant]
     Route: 065
     Dates: start: 20090720, end: 20090722

REACTIONS (5)
  - HAEMATOMA [None]
  - HAEMOGLOBIN DECREASED [None]
  - MUSCLE HAEMORRHAGE [None]
  - OFF LABEL USE [None]
  - PROTHROMBIN LEVEL DECREASED [None]
